FAERS Safety Report 23497221 (Version 1)
Quarter: 2024Q1

REPORT INFORMATION
  Report Type: Spontaneous
  Country: US (occurrence: US)
  Receive Date: 20240208
  Receipt Date: 20240208
  Transmission Date: 20240410
  Serious: Yes (Other)
  Sender: FDA-Public Use
  Company Number: US-ABBVIE-5627178

PATIENT
  Age: 12 Year
  Sex: Female

DRUGS (8)
  1. ESTRADIOL [Suspect]
     Active Substance: ESTRADIOL
     Indication: Ovarian failure
     Route: 062
  2. ESTRADIOL [Suspect]
     Active Substance: ESTRADIOL
     Dosage: DOSE WAS INCREASED
     Route: 062
  3. ESTRADIOL [Suspect]
     Active Substance: ESTRADIOL
     Dosage: RESTARTED
     Route: 062
  4. ESTRADIOL [Suspect]
     Active Substance: ESTRADIOL
     Dosage: INCREASED
     Route: 062
  5. ESTRADIOL [Suspect]
     Active Substance: ESTRADIOL
     Dosage: INCREASED
     Route: 062
  6. LEUPROLIDE ACETATE [Suspect]
     Active Substance: LEUPROLIDE ACETATE
     Indication: Menstrual disorder
     Route: 065
  7. NORETHINDRONE ACETATE [Concomitant]
     Active Substance: NORETHINDRONE ACETATE
     Indication: Menstrual disorder
     Route: 048
  8. ESTROGENS [Concomitant]
     Active Substance: ESTROGENS
     Indication: Graft versus host disease
     Route: 061

REACTIONS (3)
  - Uterine haemorrhage [Recovered/Resolved]
  - Off label use [Unknown]
  - Off label use [Unknown]
